FAERS Safety Report 5645719-X (Version None)
Quarter: 2008Q1

REPORT INFORMATION
  Report Type: 
  Country: None (occurrence: None)
  Receive Date: 20080229
  Receipt Date: 20080219
  Transmission Date: 20080703
  Serious: Yes (Hospitalization, Disabling, Other)
  Sender: FDA-Public Use
  Company Number: DE-PFIZER INC-2007060990

PATIENT
  Sex: Female

DRUGS (3)
  1. VFEND [Suspect]
     Indication: PNEUMONIA
     Route: 042
     Dates: start: 20070412, end: 20071001
  2. VFEND [Suspect]
     Indication: PNEUMONIA
     Route: 048
  3. NEPHROTRANS [Concomitant]

REACTIONS (9)
  - ANAEMIA [None]
  - BLOOD CREATININE INCREASED [None]
  - CIRCULATORY COLLAPSE [None]
  - HYPOKALAEMIA [None]
  - LIVER FUNCTION TEST ABNORMAL [None]
  - METABOLIC ACIDOSIS [None]
  - NEUROPATHY PERIPHERAL [None]
  - RESPIRATORY FAILURE [None]
  - VISUAL DISTURBANCE [None]
